FAERS Safety Report 4319915-8 (Version None)
Quarter: 2004Q1

REPORT INFORMATION
  Report Type: 
  Country: None (occurrence: None)
  Receive Date: 20040316
  Receipt Date: 20040309
  Transmission Date: 20041129
  Serious: Yes (Other)
  Sender: FDA-Public Use
  Company Number: 2004200685US

PATIENT
  Sex: Female
  Weight: 79.4 kg

DRUGS (6)
  1. CELEBREX [Suspect]
     Indication: ARTHRALGIA
     Dosage: 200 MG, BID
     Dates: end: 20030801
  2. SYNTHROID [Concomitant]
  3. PULMICORT [Concomitant]
  4. SEREVENT [Concomitant]
  5. UNIPHYL [Concomitant]
  6. PREMARIN [Concomitant]

REACTIONS (1)
  - HIP ARTHROPLASTY [None]
